FAERS Safety Report 12279550 (Version 1)
Quarter: 2016Q2

REPORT INFORMATION
  Report Type: Spontaneous
  Country: US (occurrence: US)
  Receive Date: 20160418
  Receipt Date: 20160418
  Transmission Date: 20160815
  Serious: No
  Sender: FDA-Public Use
  Company Number: US-OTSUKA-2016_005839

PATIENT
  Age: 13 Year
  Sex: Female

DRUGS (5)
  1. REXULTI [Suspect]
     Active Substance: BREXPIPRAZOLE
     Indication: IRRITABILITY
     Dosage: 2 MG, DAILY
     Route: 048
     Dates: start: 201602
  2. REXULTI [Suspect]
     Active Substance: BREXPIPRAZOLE
     Indication: NERVOUSNESS
  3. REXULTI [Suspect]
     Active Substance: BREXPIPRAZOLE
     Indication: AUTISM
  4. REXULTI [Suspect]
     Active Substance: BREXPIPRAZOLE
     Indication: ANXIETY
  5. XANAX [Concomitant]
     Active Substance: ALPRAZOLAM
     Indication: ANXIETY
     Dosage: UNK
     Route: 065

REACTIONS (4)
  - Off label use [Unknown]
  - No adverse event [Unknown]
  - Drug administered to patient of inappropriate age [Unknown]
  - Incorrect dose administered [Unknown]

NARRATIVE: CASE EVENT DATE: 201602
